FAERS Safety Report 4747933-4 (Version None)
Quarter: 2005Q3

REPORT INFORMATION
  Report Type: 
  Country: None (occurrence: None)
  Receive Date: 20050816
  Receipt Date: 20050804
  Transmission Date: 20060218
  Serious: Yes (Death)
  Sender: FDA-Public Use
  Company Number: 2005-BP-13361RO

PATIENT
  Age: 42 Year
  Sex: Male

DRUGS (2)
  1. CITALOPRAM HYDROBROMIDE [Suspect]
  2. DIAZEPAM [Concomitant]

REACTIONS (4)
  - ACCIDENTAL DEATH [None]
  - DRUG LEVEL INCREASED [None]
  - ROAD TRAFFIC ACCIDENT [None]
  - THERMAL BURN [None]
